FAERS Safety Report 4941484-X (Version None)
Quarter: 2006Q1

REPORT INFORMATION
  Report Type: 
  Country: None (occurrence: None)
  Receive Date: 20060310
  Receipt Date: 20060310
  Transmission Date: 20060701
  Serious: Yes (Hospitalization)
  Sender: FDA-Public Use
  Company Number: None

PATIENT
  Age: 41 Year
  Sex: Female

DRUGS (9)
  1. METOPROLOL [Suspect]
     Indication: HYPERTENSION
     Dosage: 100MG
     Dates: start: 20051104
  2. CALCITRIOL [Concomitant]
  3. PHENYTOIN [Concomitant]
  4. PREDNISONE [Concomitant]
  5. LEXAPRO [Concomitant]
  6. NIFEDIPINE [Concomitant]
  7. METHADONE [Concomitant]
  8. SOMA [Concomitant]
  9. ALPRAZOLAM [Concomitant]

REACTIONS (2)
  - BRADYCARDIA [None]
  - HYPOTENSION [None]
